FAERS Safety Report 8546292-9 (Version None)
Quarter: 2012Q3

REPORT INFORMATION
  Report Type: 
  Country: None (occurrence: None)
  Receive Date: 20120727
  Receipt Date: 20111212
  Transmission Date: 20120928
  Serious: No
  Sender: FDA-Public Use
  Company Number: US-ASTRAZENECA-2011SE75370

PATIENT
  Age: 51 Year
  Sex: Male

DRUGS (2)
  1. SEROQUEL [Suspect]
     Route: 048
  2. PROZAC [Concomitant]

REACTIONS (5)
  - ALCOHOL PROBLEM [None]
  - WRONG DRUG ADMINISTERED [None]
  - DEPRESSION [None]
  - FALL [None]
  - DRUG DOSE OMISSION [None]
